FAERS Safety Report 20513003 (Version 1)
Quarter: 2022Q1

REPORT INFORMATION
  Report Type: Spontaneous
  Country: US (occurrence: US)
  Receive Date: 20220224
  Receipt Date: 20220224
  Transmission Date: 20220424
  Serious: No
  Sender: FDA-Public Use
  Company Number: US-AMNEAL PHARMACEUTICALS-2021-AMRX-00352

PATIENT
  Age: 72 Year
  Sex: Male
  Weight: 83 kg

DRUGS (6)
  1. RYTARY [Suspect]
     Active Substance: CARBIDOPA\LEVODOPA
     Indication: Parkinson^s disease
     Dosage: 3 CAPSULES, EVERY 6HR (4 TIMES A DAY)
     Route: 048
     Dates: start: 202101, end: 2021
  2. RYTARY [Suspect]
     Active Substance: CARBIDOPA\LEVODOPA
     Dosage: 2 CAPSULES, EVERY 4HR (6 TIMES A DAY)
     Route: 048
     Dates: start: 2021
  3. LOSARTAN POTASSIUM [Concomitant]
     Active Substance: LOSARTAN POTASSIUM
     Indication: Hypertension
     Dosage: 1 DOSAGE FORM, 1 /DAY
     Route: 065
  4. AMLODIPINE [Concomitant]
     Active Substance: AMLODIPINE BESYLATE
     Indication: Hypertension
     Dosage: 1 DOSAGE FORM, 1 /DAY
     Route: 065
  5. ATORVASTATIN [Concomitant]
     Active Substance: ATORVASTATIN
     Indication: Blood cholesterol
     Dosage: 1 DOSAGE FORM, 1 /DAY
     Route: 065
  6. ASPIRIN [Concomitant]
     Active Substance: ASPIRIN
     Indication: Product used for unknown indication
     Dosage: 81 MILLIGRAM, 1 /DAY
     Route: 065

REACTIONS (3)
  - Therapeutic response shortened [Recovered/Resolved]
  - Tremor [Recovered/Resolved]
  - Headache [Recovered/Resolved]

NARRATIVE: CASE EVENT DATE: 20210101
